FAERS Safety Report 9732222 (Version 1)
Quarter: 2013Q4

REPORT INFORMATION
  Report Type: Spontaneous
  Country: US (occurrence: US)
  Receive Date: 20131204
  Receipt Date: 20131204
  Transmission Date: 20140711
  Serious: No
  Sender: FDA-Public Use
  Company Number: US-BAYER-2013-148040

PATIENT
  Age: 77 Year
  Sex: Male
  Weight: 73.47 kg

DRUGS (4)
  1. ALEVE TABLET [Suspect]
     Indication: ANALGESIC THERAPY
     Dosage: 2 DF, PRN
     Route: 048
     Dates: start: 2013
  2. ALEVE TABLET [Suspect]
     Indication: EYE INFLAMMATION
     Dosage: 2 DF, BID
     Route: 048
     Dates: start: 20131202
  3. ALEVE TABLET [Suspect]
     Indication: EYE PAIN
  4. LISINOPRIL [Concomitant]

REACTIONS (2)
  - Off label use [None]
  - Extra dose administered [None]
